FAERS Safety Report 13531443 (Version 1)
Quarter: 2017Q2

REPORT INFORMATION
  Report Type: Spontaneous
  Country: US (occurrence: US)
  Receive Date: 20170510
  Receipt Date: 20170510
  Transmission Date: 20170830
  Serious: Yes (Death, Hospitalization, Other)
  Sender: FDA-Public Use
  Company Number: US-BION-006287

PATIENT
  Age: 26 Year
  Sex: Male

DRUGS (1)
  1. LOPERAMIDE HYDROCHLORIDE UNKNOWN PRODUCT [Suspect]
     Active Substance: LOPERAMIDE HYDROCHLORIDE

REACTIONS (12)
  - Suicide attempt [Fatal]
  - Withdrawal syndrome [Unknown]
  - Anxiety [Unknown]
  - Drug use disorder [Unknown]
  - Vomiting [Unknown]
  - Lacrimation increased [Unknown]
  - Yawning [Unknown]
  - Intentional overdose [Fatal]
  - Cardiac arrest [Unknown]
  - Hyperhidrosis [Unknown]
  - Diarrhoea [Unknown]
  - Tremor [Unknown]
